FAERS Safety Report 25220627 (Version 1)
Quarter: 2025Q2

REPORT INFORMATION
  Report Type: Spontaneous
  Country: GB (occurrence: GB)
  Receive Date: 20250421
  Receipt Date: 20250421
  Transmission Date: 20250717
  Serious: Yes (Other)
  Sender: MYLAN
  Company Number: None

PATIENT
  Age: 54 Year

DRUGS (4)
  1. PREGABALIN [Suspect]
     Active Substance: PREGABALIN
     Indication: Product used for unknown indication
     Dosage: 300 MILLIGRAM, PM (AT NIGHT)
  2. PREGABALIN [Suspect]
     Active Substance: PREGABALIN
     Dosage: 300 MILLIGRAM, PM (AT NIGHT)
     Route: 065
  3. PREGABALIN [Suspect]
     Active Substance: PREGABALIN
     Dosage: 300 MILLIGRAM, PM (AT NIGHT)
     Route: 065
  4. PREGABALIN [Suspect]
     Active Substance: PREGABALIN
     Dosage: 300 MILLIGRAM, PM (AT NIGHT)

REACTIONS (1)
  - Hunger [Not Recovered/Not Resolved]
